FAERS Safety Report 5096438-2 (Version None)
Quarter: 2006Q3

REPORT INFORMATION
  Report Type: 
  Country: None (occurrence: None)
  Receive Date: 20060905
  Receipt Date: 20060824
  Transmission Date: 20061208
  Serious: Yes (Hospitalization)
  Sender: FDA-Public Use
  Company Number: JP-JNJFOC-20060405819

PATIENT
  Age: 65 Year
  Sex: Female

DRUGS (6)
  1. OXYBUTYNIN HYDROCHLORIDE [Suspect]
     Indication: POLLAKIURIA
     Route: 048
  2. CABAGIN KOWA [Suspect]
     Indication: DRUG USE FOR UNKNOWN INDICATION
  3. LIVALO [Concomitant]
  4. EVISTA [Concomitant]
  5. TENORMIN [Concomitant]
  6. ROCALTROL [Concomitant]

REACTIONS (1)
  - HEPATITIS A [None]
